FAERS Safety Report 6262291-4 (Version None)
Quarter: 2009Q3

REPORT INFORMATION
  Report Type: 
  Country: None (occurrence: None)
  Receive Date: 20090702
  Receipt Date: 20090522
  Transmission Date: 20100115
  Serious: No
  Sender: FDA-Public Use
  Company Number: 1000006429

PATIENT
  Age: 42 Year
  Sex: Female

DRUGS (4)
  1. BYSTOLIC [Suspect]
     Indication: HYPERTENSION
     Dosage: 20 MG (10 MG, 2 IN 1 D), ORAL; 30 MG (30 MG, 1 IN 1 D), ORAL; 40 MG (40 MG, 1 IN 1D), ORAL
     Route: 048
     Dates: start: 20090515, end: 20090501
  2. BYSTOLIC [Suspect]
     Indication: HYPERTENSION
     Dosage: 20 MG (10 MG, 2 IN 1 D), ORAL; 30 MG (30 MG, 1 IN 1 D), ORAL; 40 MG (40 MG, 1 IN 1D), ORAL
     Route: 048
     Dates: start: 20090513, end: 20090514
  3. BYSTOLIC [Suspect]
     Indication: HYPERTENSION
     Dosage: 20 MG (10 MG, 2 IN 1 D), ORAL; 30 MG (30 MG, 1 IN 1 D), ORAL; 40 MG (40 MG, 1 IN 1D), ORAL
     Route: 048
     Dates: start: 20090501
  4. LEXAPRO [Concomitant]

REACTIONS (1)
  - NECK PAIN [None]
